FAERS Safety Report 6750641-1 (Version None)
Quarter: 2010Q2

REPORT INFORMATION
  Report Type: 
  Country: None (occurrence: None)
  Receive Date: 20100602
  Receipt Date: 20100525
  Transmission Date: 20101027
  Serious: Yes (Hospitalization)
  Sender: FDA-Public Use
  Company Number: US-BIOGENIDEC-2010BI007774

PATIENT
  Age: 65 Year
  Sex: Female

DRUGS (2)
  1. TYSABRI [Suspect]
     Indication: MULTIPLE SCLEROSIS
     Route: 042
     Dates: start: 20050201, end: 20050201
  2. TYSABRI [Suspect]
     Route: 042
     Dates: start: 20070503

REACTIONS (11)
  - CONVULSION [None]
  - COUGH [None]
  - DEPRESSION [None]
  - FALL [None]
  - FATIGUE [None]
  - INFLUENZA LIKE ILLNESS [None]
  - MUSCLE SPASMS [None]
  - OEDEMA PERIPHERAL [None]
  - PAIN [None]
  - PATELLA FRACTURE [None]
  - UPPER LIMB FRACTURE [None]
